FAERS Safety Report 7471259-1 (Version None)
Quarter: 2011Q2

REPORT INFORMATION
  Report Type: 
  Country: None (occurrence: None)
  Receive Date: 20110510
  Receipt Date: 20110427
  Transmission Date: 20111010
  Serious: Yes (Other)
  Sender: FDA-Public Use
  Company Number: PHHY2011US34733

PATIENT
  Sex: Female

DRUGS (4)
  1. GLEEVEC [Suspect]
     Dosage: 300 MG, DAILY
     Route: 048
     Dates: start: 20090123
  2. COREG [Concomitant]
  3. GLEEVEC [Suspect]
     Indication: GASTRIC CANCER
     Dosage: UNK
     Dates: start: 20030925
  4. ARICEPT [Concomitant]
     Dosage: 10 MG, UNK

REACTIONS (12)
  - NEOPLASM MALIGNANT [None]
  - FEELING ABNORMAL [None]
  - AMNESIA [None]
  - NAUSEA [None]
  - DIARRHOEA [None]
  - GASTROOESOPHAGEAL REFLUX DISEASE [None]
  - PANCREATIC INSUFFICIENCY [None]
  - PAIN [None]
  - VOMITING [None]
  - MALAISE [None]
  - IRON DEFICIENCY [None]
  - CARDIAC MURMUR [None]
